FAERS Safety Report 14527286 (Version 1)
Quarter: 2018Q1

REPORT INFORMATION
  Report Type: Spontaneous
  Country: SE (occurrence: SE)
  Receive Date: 20180213
  Receipt Date: 20180213
  Transmission Date: 20180509
  Serious: Yes (Hospitalization)
  Sender: FDA-Public Use
  Company Number: SE-TEVA-2018-SE-846171

PATIENT
  Age: 17 Year
  Sex: Female

DRUGS (1)
  1. SERTRALINE [Suspect]
     Active Substance: SERTRALINE HYDROCHLORIDE
     Route: 065

REACTIONS (7)
  - Middle insomnia [Unknown]
  - Nausea [Unknown]
  - Restlessness [Unknown]
  - Agitation [Unknown]
  - Depressed mood [Unknown]
  - Anxiety [Unknown]
  - Suicidal ideation [Unknown]
